FAERS Safety Report 15061271 (Version 1)
Quarter: 2018Q2

REPORT INFORMATION
  Report Type: Spontaneous
  Country: US (occurrence: US)
  Receive Date: 20180625
  Receipt Date: 20180625
  Transmission Date: 20180711
  Serious: Yes (Other)
  Sender: FDA-Public Use
  Company Number: US-ROCHE-2102714

PATIENT
  Age: 66 Year
  Sex: Female

DRUGS (2)
  1. CAPECITABINE. [Suspect]
     Active Substance: CAPECITABINE
     Indication: ECCRINE CARCINOMA
     Dosage: EVERY 12 HOUR THAT FOLLOWED A 2-WEEK ON/1-WEEK DOSING SCHEDULE
     Route: 048
     Dates: start: 201202
  2. CAPECITABINE. [Suspect]
     Active Substance: CAPECITABINE
     Route: 048
     Dates: end: 201308

REACTIONS (1)
  - Palmar-plantar erythrodysaesthesia syndrome [Unknown]
